FAERS Safety Report 23797217 (Version 3)
Quarter: 2024Q2

REPORT INFORMATION
  Report Type: Other
  Country: US (occurrence: US)
  Receive Date: 20240430
  Receipt Date: 20240511
  Transmission Date: 20240715
  Serious: No
  Sender: FDA-Public Use
  Company Number: US-TRAVERE-2024TVT00314

PATIENT
  Age: 43 Year
  Sex: Female
  Weight: 138.35 kg

DRUGS (7)
  1. FILSPARI [Suspect]
     Active Substance: SPARSENTAN
     Indication: IgA nephropathy
     Dosage: ONE 200 MG TABLET ONCE DAILY ON DAYS 1 THROUGH 14
     Route: 048
     Dates: start: 202403
  2. FILSPARI [Suspect]
     Active Substance: SPARSENTAN
     Route: 048
     Dates: start: 20240402
  3. IRON [Concomitant]
     Active Substance: IRON
  4. CRANBERRY [Concomitant]
     Active Substance: CRANBERRY
  5. VITAMIN D2 [Concomitant]
     Active Substance: ERGOCALCIFEROL
  6. FARXIGA [Concomitant]
     Active Substance: DAPAGLIFLOZIN PROPANEDIOL
  7. PIOGLITAZONE [Concomitant]
     Active Substance: PIOGLITAZONE

REACTIONS (5)
  - Seasonal allergy [Unknown]
  - Illness [Unknown]
  - Dizziness [Unknown]
  - Peripheral swelling [Unknown]
  - Presyncope [Unknown]

NARRATIVE: CASE EVENT DATE: 20240301
